FAERS Safety Report 11375155 (Version 1)
Quarter: 2015Q3

REPORT INFORMATION
  Report Type: Spontaneous
  Country: GB (occurrence: GB)
  Receive Date: 20150813
  Receipt Date: 20150813
  Transmission Date: 20151125
  Serious: Yes (Other)
  Sender: FDA-Public Use
  Company Number: GB-WATSON-2015-16846

PATIENT
  Age: 76 Year
  Sex: Male
  Weight: 70 kg

DRUGS (3)
  1. RAMIPRIL (UNKNOWN) [Suspect]
     Active Substance: RAMIPRIL
     Indication: PRODUCT USED FOR UNKNOWN INDICATION
     Dosage: 5 MG, DAILY
     Route: 065
     Dates: start: 201303
  2. ZICRON [Concomitant]
     Active Substance: GLICLAZIDE
     Indication: TYPE 2 DIABETES MELLITUS
     Dosage: 40 MG, BID
     Route: 065
  3. METFORMIN [Concomitant]
     Active Substance: METFORMIN HYDROCHLORIDE
     Indication: TYPE 3 DIABETES MELLITUS
     Dosage: 500 MG, BID
     Route: 065

REACTIONS (9)
  - Hyperhidrosis [Not Recovered/Not Resolved]
  - Paraesthesia [Not Recovered/Not Resolved]
  - Appetite disorder [Not Recovered/Not Resolved]
  - Sensory disturbance [Not Recovered/Not Resolved]
  - Balance disorder [Not Recovered/Not Resolved]
  - Feeling hot [Not Recovered/Not Resolved]
  - Neuropathy peripheral [Not Recovered/Not Resolved]
  - Vision blurred [Not Recovered/Not Resolved]
  - Pruritus [Not Recovered/Not Resolved]

NARRATIVE: CASE EVENT DATE: 201305
